FAERS Safety Report 15991765 (Version 1)
Quarter: 2019Q1

REPORT INFORMATION
  Report Type: Spontaneous
  Country: US (occurrence: US)
  Receive Date: 20190221
  Receipt Date: 20190221
  Transmission Date: 20190418
  Serious: Yes (Other)
  Sender: FDA-Public Use
  Company Number: US-ASTRAZENECA-2019SE10392

PATIENT

DRUGS (21)
  1. HYDROCODONE [Concomitant]
     Active Substance: HYDROCODONE
  2. SPIRIVA [Concomitant]
     Active Substance: TIOTROPIUM BROMIDE MONOHYDRATE
  3. TAMSULOSIN [Concomitant]
     Active Substance: TAMSULOSIN
  4. RISPERIDONE. [Concomitant]
     Active Substance: RISPERIDONE
  5. TAMSULOSIN [Concomitant]
     Active Substance: TAMSULOSIN
  6. LEVOFLOXACIN. [Concomitant]
     Active Substance: LEVOFLOXACIN
  7. NEXIUM [Suspect]
     Active Substance: ESOMEPRAZOLE MAGNESIUM
     Route: 048
     Dates: start: 20121126
  8. NASONEX [Concomitant]
     Active Substance: MOMETASONE FUROATE
  9. CEPHALEXIN. [Concomitant]
     Active Substance: CEPHALEXIN
  10. NEXIUM [Suspect]
     Active Substance: ESOMEPRAZOLE MAGNESIUM
     Route: 048
     Dates: start: 20110930
  11. MORPHINE [Concomitant]
     Active Substance: MORPHINE
  12. NEXIUM [Suspect]
     Active Substance: ESOMEPRAZOLE MAGNESIUM
     Route: 048
     Dates: start: 20120130
  13. LORAZEPAM. [Concomitant]
     Active Substance: LORAZEPAM
  14. MORPHINE [Concomitant]
     Active Substance: MORPHINE
  15. GABAPENTIN. [Concomitant]
     Active Substance: GABAPENTIN
  16. SULFAMETHOXAZOLE [Concomitant]
     Active Substance: SULFAMETHOXAZOLE
  17. BISOPROLOL [Concomitant]
     Active Substance: BISOPROLOL
  18. LIPITOR [Concomitant]
     Active Substance: ATORVASTATIN CALCIUM
  19. NEXIUM [Suspect]
     Active Substance: ESOMEPRAZOLE MAGNESIUM
     Route: 048
     Dates: start: 20111119
  20. ZIPRASIDONE. [Concomitant]
     Active Substance: ZIPRASIDONE
  21. LANSOPRAZOLE. [Concomitant]
     Active Substance: LANSOPRAZOLE

REACTIONS (2)
  - Acute kidney injury [Unknown]
  - Chronic kidney disease [Unknown]
